FAERS Safety Report 7089705-4 (Version None)
Quarter: 2010Q4

REPORT INFORMATION
  Report Type: 
  Country: None (occurrence: None)
  Receive Date: 20101108
  Receipt Date: 20100322
  Transmission Date: 20110411
  Serious: No
  Sender: FDA-Public Use
  Company Number: US-ABBOTT-10P-163-0634338-00

PATIENT
  Sex: Male
  Weight: 86.26 kg

DRUGS (7)
  1. TRICOR [Suspect]
     Indication: HIGH DENSITY LIPOPROTEIN DECREASED
     Dates: start: 20000101, end: 20080101
  2. TRILIPIX [Suspect]
     Indication: HIGH DENSITY LIPOPROTEIN DECREASED
     Dates: start: 20091201
  3. TRILIPIX [Suspect]
     Dates: start: 20091201, end: 20091201
  4. PREVACHOL [Concomitant]
     Indication: HIGH DENSITY LIPOPROTEIN DECREASED
  5. ASPIRIN [Concomitant]
     Indication: HIGH DENSITY LIPOPROTEIN DECREASED
  6. FLAX SEED [Concomitant]
     Indication: MEDICAL DIET
  7. AVOCADO [Concomitant]
     Indication: MEDICAL DIET

REACTIONS (6)
  - HEART RATE INCREASED [None]
  - NECK PAIN [None]
  - PRURITUS [None]
  - RASH [None]
  - RASH MACULAR [None]
  - SKIN FISSURES [None]
